FAERS Safety Report 16260200 (Version 1)
Quarter: 2019Q2

REPORT INFORMATION
  Report Type: Spontaneous
  Country: US (occurrence: US)
  Receive Date: 20190430
  Receipt Date: 20190430
  Transmission Date: 20190711
  Serious: Yes (Hospitalization)
  Sender: FDA-Public Use
  Company Number: None

PATIENT
  Age: 30 Year
  Sex: Female

DRUGS (13)
  1. CARVEDILOL 6.25 [Concomitant]
     Dates: start: 20170604
  2. PREDNISONE 20MG [Concomitant]
     Active Substance: PREDNISONE
     Dates: start: 20171227
  3. CALCITRIOL 0.5MCG [Concomitant]
     Dates: start: 20181212
  4. LOSARTAN 25MG [Concomitant]
     Active Substance: LOSARTAN
     Dates: start: 20190401
  5. HYDROMORPHONE 2MG [Concomitant]
     Dates: start: 20190401
  6. VELTASSA [Suspect]
     Active Substance: PATIROMER
     Indication: HYPERKALAEMIA
     Route: 048
     Dates: start: 20181226
  7. FERROUS SULFATE 325MG [Concomitant]
     Active Substance: FERROUS SULFATE
     Dates: start: 20190307
  8. LORAZEPAM 0.5MG [Concomitant]
     Active Substance: LORAZEPAM
     Dates: start: 20190401
  9. PANTOPRAZOLE 40MG [Concomitant]
     Active Substance: PANTOPRAZOLE SODIUM
     Dates: start: 20171211
  10. METOPROLOL ER SUCCINATE 25 [Concomitant]
     Dates: start: 20190120
  11. SERTRALINE [Concomitant]
     Active Substance: SERTRALINE HYDROCHLORIDE
     Dates: start: 20190307
  12. VITAMIN D 1,000 UNIT [Concomitant]
     Dates: start: 20170718
  13. RISPERIDONE 1MG [Concomitant]
     Active Substance: RISPERIDONE
     Dates: start: 20171227

REACTIONS (5)
  - Oral fungal infection [None]
  - Onychomycosis [None]
  - Chest pain [None]
  - Pyrexia [None]
  - Memory impairment [None]

NARRATIVE: CASE EVENT DATE: 20190408
